FAERS Safety Report 8367749-X (Version None)
Quarter: 2012Q2

REPORT INFORMATION
  Report Type: 
  Country: None (occurrence: None)
  Receive Date: 20120517
  Receipt Date: 20120509
  Transmission Date: 20120825
  Serious: Yes (Hospitalization)
  Sender: FDA-Public Use
  Company Number: FR-GLAXOSMITHKLINE-B0800319A

PATIENT
  Age: 76 Year
  Sex: Female

DRUGS (8)
  1. ASPIRIN [Suspect]
     Indication: EMBOLISM VENOUS
     Dosage: 160MG PER DAY
     Route: 048
  2. ATORVASTATIN [Concomitant]
     Route: 065
  3. ARIXTRA [Suspect]
     Indication: EMBOLISM VENOUS
     Dosage: 7.5MG UNKNOWN
     Route: 065
     Dates: end: 20101221
  4. PENTOXIFYLLINE [Suspect]
     Indication: EMBOLISM VENOUS
     Dosage: 10MG PER DAY
     Route: 048
     Dates: end: 20101221
  5. ESIDRIX [Concomitant]
     Route: 065
  6. CACIT [Concomitant]
     Route: 065
  7. PREDNISOLONE [Concomitant]
     Route: 065
  8. FOLIC ACID [Concomitant]
     Route: 065

REACTIONS (2)
  - HAEMORRHAGIC ANAEMIA [None]
  - MUSCLE HAEMORRHAGE [None]
